FAERS Safety Report 4795100-0 (Version None)
Quarter: 2005Q4

REPORT INFORMATION
  Report Type: 
  Country: None (occurrence: None)
  Receive Date: 20051012
  Receipt Date: 20050930
  Transmission Date: 20060501
  Serious: Yes (Hospitalization)
  Sender: FDA-Public Use
  Company Number: GB-BRISTOL-MYERS SQUIBB COMPANY-13136700

PATIENT
  Age: 69 Year
  Sex: Male

DRUGS (17)
  1. CETUXIMAB [Suspect]
     Indication: NON-SMALL CELL LUNG CANCER
     Route: 041
     Dates: start: 20050902
  2. CISPLATIN [Suspect]
     Indication: NON-SMALL CELL LUNG CANCER
     Route: 042
     Dates: start: 20050902
  3. VINORELBINE [Suspect]
     Indication: NON-SMALL CELL LUNG CANCER
     Route: 042
     Dates: start: 20050902
  4. PREDNISOLONE [Concomitant]
     Route: 048
     Dates: start: 20050727
  5. CODEINE PHOSPHATE [Concomitant]
     Route: 048
     Dates: start: 20050817
  6. LANSOPRAZOLE [Concomitant]
     Route: 048
     Dates: start: 20050817
  7. MOVICOL [Concomitant]
     Dosage: 2 SACHET
     Route: 048
     Dates: start: 20050901
  8. HYDROCORTISONE [Concomitant]
     Route: 042
     Dates: start: 20050902
  9. CHLORPHENIRAMINE MALEATE [Concomitant]
     Route: 042
     Dates: start: 20050909
  10. ZOPICLONE [Concomitant]
     Route: 048
     Dates: start: 20050901
  11. CODEINE LINCTUS [Concomitant]
     Route: 048
     Dates: start: 20050817
  12. ONDANSETRON [Concomitant]
     Route: 042
     Dates: start: 20050902
  13. ONDANSETRON [Concomitant]
     Route: 048
     Dates: start: 20050902
  14. DEXAMETHASONE [Concomitant]
     Route: 042
     Dates: start: 20050902
  15. DEXAMETHASONE [Concomitant]
     Route: 048
     Dates: start: 20050902
  16. METOCLOPRAMIDE [Concomitant]
     Route: 048
     Dates: start: 20050903
  17. CORSODYL [Concomitant]
     Route: 048
     Dates: start: 20050903

REACTIONS (1)
  - NEUTROPENIC SEPSIS [None]
